FAERS Safety Report 6104002-9 (Version None)
Quarter: 2009Q1

REPORT INFORMATION
  Report Type: 
  Country: None (occurrence: None)
  Receive Date: 20090302
  Receipt Date: 20090218
  Transmission Date: 20090719
  Serious: No
  Sender: FDA-Public Use
  Company Number: 2009-191677-NL

PATIENT
  Sex: Female

DRUGS (1)
  1. FOLLITROPIN BETA [Suspect]
     Dosage: DF SUBCUTANEOUS
     Route: 058

REACTIONS (1)
  - CHORIOCARCINOMA [None]
